FAERS Safety Report 12352823 (Version 5)
Quarter: 2018Q1

REPORT INFORMATION
  Report Type: Report from Study
  Country: US (occurrence: US)
  Receive Date: 20160510
  Receipt Date: 20180111
  Transmission Date: 20180508
  Serious: Yes (Hospitalization, Other)
  Sender: FDA-Public Use
  Company Number: US-ARIAD PHARMACEUTICALS, INC-2015US004909

PATIENT
  Sex: Male

DRUGS (9)
  1. PONATINIB [Suspect]
     Active Substance: PONATINIB
     Dosage: 30 MG, QD
     Route: 048
  2. PONATINIB [Suspect]
     Active Substance: PONATINIB
     Dosage: 30 MG, QD
     Route: 048
  3. PONATINIB [Suspect]
     Active Substance: PONATINIB
     Dosage: 30 MG, QD
     Route: 048
  4. PONATINIB [Suspect]
     Active Substance: PONATINIB
     Indication: CHRONIC MYELOID LEUKAEMIA (IN REMISSION)
     Dosage: 30 MG, QD
     Route: 048
     Dates: start: 201504
  5. PONATINIB [Suspect]
     Active Substance: PONATINIB
     Dosage: 30 MG, QD
     Route: 048
     Dates: start: 20150417
  6. PONATINIB [Suspect]
     Active Substance: PONATINIB
     Dosage: 30 MG, QD
     Route: 048
  7. PONATINIB [Suspect]
     Active Substance: PONATINIB
     Dosage: 30 MG, QD
     Route: 048
  8. PONATINIB [Suspect]
     Active Substance: PONATINIB
     Dosage: 30 MG, QD
     Route: 048
  9. PONATINIB [Suspect]
     Active Substance: PONATINIB
     Dosage: UNK
     Route: 048

REACTIONS (26)
  - Malaise [Recovered/Resolved]
  - Blood glucose increased [Unknown]
  - Dyspnoea [Unknown]
  - Pallor [Recovering/Resolving]
  - Neuropathy peripheral [Unknown]
  - Fatigue [Not Recovered/Not Resolved]
  - Skin discolouration [Recovering/Resolving]
  - White blood cell count increased [Unknown]
  - Visual impairment [Not Recovered/Not Resolved]
  - Dizziness [Recovered/Resolved]
  - Depression [Not Recovered/Not Resolved]
  - Influenza [Unknown]
  - Red cell distribution width increased [Unknown]
  - Vision blurred [Unknown]
  - Rash [Not Recovered/Not Resolved]
  - Hospitalisation [Unknown]
  - Skin lesion [Recovering/Resolving]
  - Dyschromatopsia [Unknown]
  - Dry skin [Unknown]
  - Chest pain [Unknown]
  - Skin exfoliation [Recovering/Resolving]
  - Sunburn [Unknown]
  - Constipation [Not Recovered/Not Resolved]
  - Bronchitis [Unknown]
  - Tooth abscess [Not Recovered/Not Resolved]
  - Bone pain [Unknown]
